FAERS Safety Report 6986605-2 (Version None)
Quarter: 2010Q3

REPORT INFORMATION
  Report Type: 
  Country: None (occurrence: None)
  Receive Date: 20100915
  Receipt Date: 20090720
  Transmission Date: 20110219
  Serious: No
  Sender: FDA-Public Use
  Company Number: US-WYE-H10230309

PATIENT
  Sex: Female

DRUGS (3)
  1. PRISTIQ [Suspect]
     Indication: DEPRESSION
     Route: 048
     Dates: start: 20080701, end: 20090717
  2. PRISTIQ [Suspect]
     Route: 048
     Dates: start: 20090720
  3. CONJUGATED ESTROGENS [Concomitant]
     Dosage: DOSE UNKNOWN
     Route: 065

REACTIONS (6)
  - ANGER [None]
  - DRUG WITHDRAWAL SYNDROME [None]
  - DYSKINESIA [None]
  - EYE PAIN [None]
  - PARAESTHESIA [None]
  - TACHYPHRENIA [None]
